FAERS Safety Report 19078808 (Version 1)
Quarter: 2021Q1

REPORT INFORMATION
  Report Type: Spontaneous
  Country: JP (occurrence: JP)
  Receive Date: 20210331
  Receipt Date: 20210331
  Transmission Date: 20210420
  Serious: Yes (Hospitalization, Other)
  Sender: FDA-Public Use
  Company Number: JP-DENTSPLY-2021SCDP000093

PATIENT
  Age: 41 Year
  Sex: Male
  Weight: 52.5 kg

DRUGS (1)
  1. LIDOCAINE. [Suspect]
     Active Substance: LIDOCAINE
     Indication: HAEMORRHOIDS
     Dosage: SUBMUCOSAL INJECTION
     Route: 054

REACTIONS (2)
  - Liver injury [Recovered/Resolved]
  - Drug-induced liver injury [Recovered/Resolved]
